FAERS Safety Report 9257678 (Version 2)
Quarter: 2013Q2

REPORT INFORMATION
  Report Type: Spontaneous
  Country: TR (occurrence: TR)
  Receive Date: 20130426
  Receipt Date: 20130510
  Transmission Date: 20140414
  Serious: Yes (Death, Life-Threatening, Hospitalization)
  Sender: FDA-Public Use
  Company Number: TR-MILLENNIUM PHARMACEUTICALS, INC.-2013-03018

PATIENT
  Sex: 0

DRUGS (2)
  1. VELCADE [Suspect]
     Indication: PLASMA CELL MYELOMA
     Dosage: UNK
     Route: 058
     Dates: start: 20121016, end: 20130115
  2. DEXAMETHASONE [Concomitant]
     Indication: PLASMA CELL MYELOMA
     Dosage: UNK
     Dates: end: 20130115

REACTIONS (3)
  - Pneumonia [Fatal]
  - Multi-organ failure [Fatal]
  - Sepsis [Fatal]
